FAERS Safety Report 25891029 (Version 1)
Quarter: 2025Q4

REPORT INFORMATION
  Report Type: Spontaneous
  Country: US (occurrence: None)
  Receive Date: 20251007
  Receipt Date: 20251007
  Transmission Date: 20260118
  Serious: No
  Sender: FDA-CTU
  Company Number: None

PATIENT
  Age: 71 Year
  Sex: Female
  Weight: 63.9 kg

DRUGS (18)
  1. REPATHA [Suspect]
     Active Substance: EVOLOCUMAB
     Indication: Dyslipidaemia
     Dosage: 1 INJECTION(S) EVERY TWO WEEKS SUBCUTANEOUS?
     Route: 058
  2. METOPROLOL [Concomitant]
     Active Substance: METOPROLOL
  3. nestlizet [Concomitant]
  4. VALSARTAN [Concomitant]
     Active Substance: VALSARTAN
  5. ESTRADIOL [Concomitant]
     Active Substance: ESTRADIOL
  6. PROGESTERONE [Concomitant]
     Active Substance: PROGESTERONE
  7. TEMAZEPAM [Concomitant]
     Active Substance: TEMAZEPAM
  8. VASCEPA [Concomitant]
     Active Substance: ICOSAPENT ETHYL
  9. ASPIRIN [Concomitant]
     Active Substance: ASPIRIN
  10. VITAMIN D3 [Concomitant]
     Active Substance: CHOLECALCIFEROL
  11. xananathin lutein [Concomitant]
  12. kyolic [Concomitant]
  13. folate L-methylfolate [Concomitant]
  14. JWH-018 [Concomitant]
     Active Substance: JWH-018
  15. MAGNESIUM [Concomitant]
     Active Substance: MAGNESIUM
  16. BERBERINE [Concomitant]
     Active Substance: BERBERINE
  17. DIETARY SUPPLEMENT [Concomitant]
     Active Substance: DIETARY SUPPLEMENT
  18. DIETARY SUPPLEMENT [Concomitant]
     Active Substance: DIETARY SUPPLEMENT

REACTIONS (4)
  - Blood glucose increased [None]
  - Weight increased [None]
  - Back pain [None]
  - Hyperaesthesia [None]

NARRATIVE: CASE EVENT DATE: 20220715
